FAERS Safety Report 9493602 (Version 1)
Quarter: 2013Q3

REPORT INFORMATION
  Report Type: Spontaneous
  Country: FR (occurrence: FR)
  Receive Date: 20130902
  Receipt Date: 20130902
  Transmission Date: 20140515
  Serious: Yes (Hospitalization)
  Sender: FDA-Public Use
  Company Number: FR-ROCHE-1268952

PATIENT
  Age: 71 Year
  Sex: Male

DRUGS (1)
  1. RIVOTRIL [Suspect]
     Indication: EPILEPSY
     Dosage: 1 MG/ML SOLUTION FOR INJECTION
     Route: 042
     Dates: start: 20130811

REACTIONS (1)
  - Cardio-respiratory arrest [Recovered/Resolved]
